FAERS Safety Report 16352301 (Version 1)
Quarter: 2019Q2

REPORT INFORMATION
  Report Type: Report from Study
  Country: BR (occurrence: BR)
  Receive Date: 20190524
  Receipt Date: 20190524
  Transmission Date: 20190711
  Serious: Yes (Other)
  Sender: FDA-Public Use
  Company Number: PHHY2019BR116103

PATIENT
  Age: 51 Year
  Sex: Female

DRUGS (1)
  1. COSENTYX [Suspect]
     Active Substance: SECUKINUMAB
     Indication: ANKYLOSING SPONDYLITIS
     Dosage: UNK
     Route: 065
     Dates: start: 201701

REACTIONS (13)
  - Pain in extremity [Unknown]
  - Pharyngitis [Unknown]
  - Anxiety [Unknown]
  - Gait inability [Unknown]
  - Seizure [Unknown]
  - Depression [Unknown]
  - Therapeutic response shortened [Unknown]
  - Joint range of motion decreased [Unknown]
  - Decreased immune responsiveness [Unknown]
  - Autoimmune disorder [Unknown]
  - Ankylosing spondylitis [Unknown]
  - Urinary tract infection [Unknown]
  - General physical health deterioration [Unknown]

NARRATIVE: CASE EVENT DATE: 20190228
